FAERS Safety Report 7242914-3 (Version None)
Quarter: 2011Q1

REPORT INFORMATION
  Report Type: 
  Country: None (occurrence: None)
  Receive Date: 20110125
  Receipt Date: 20110112
  Transmission Date: 20110831
  Serious: No
  Sender: FDA-Public Use
  Company Number: US-ELI_LILLY_AND_COMPANY-US201009005928

PATIENT
  Sex: Male
  Weight: 29.705 kg

DRUGS (2)
  1. PREDNISONE [Concomitant]
     Dosage: 1 D/F, UNK
  2. STRATTERA [Suspect]
     Indication: ATTENTION DEFICIT/HYPERACTIVITY DISORDER
     Dosage: 80 MG, DAILY (1/D)
     Route: 048
     Dates: start: 20100910, end: 20100923

REACTIONS (1)
  - NO ADVERSE EVENT [None]
